FAERS Safety Report 9273659 (Version 1)
Quarter: 2013Q2

REPORT INFORMATION
  Report Type: Spontaneous
  Country: US (occurrence: US)
  Receive Date: 20130506
  Receipt Date: 20130506
  Transmission Date: 20140414
  Serious: No
  Sender: FDA-Public Use
  Company Number: US-AMGEN-USASP2013024493

PATIENT
  Age: 43 Year
  Sex: Male

DRUGS (3)
  1. ENBREL [Suspect]
     Indication: ANKYLOSING SPONDYLITIS
     Dosage: 50 MG, QWK
     Dates: start: 20130301
  2. ENBREL [Suspect]
     Indication: PSORIASIS
  3. ADVIL                              /00109201/ [Concomitant]
     Dosage: UNK

REACTIONS (5)
  - Joint swelling [Recovered/Resolved]
  - Local swelling [Recovered/Resolved]
  - Neck pain [Recovered/Resolved]
  - Joint stiffness [Recovered/Resolved]
  - Musculoskeletal stiffness [Recovered/Resolved]
